FAERS Safety Report 23619042 (Version 1)
Quarter: 2024Q1

REPORT INFORMATION
  Report Type: Spontaneous
  Country: US (occurrence: None)
  Receive Date: 20240311
  Receipt Date: 20240311
  Transmission Date: 20240409
  Serious: Yes (Disabling)
  Sender: FDA-Public Use
  Company Number: None

PATIENT
  Age: 71 Year
  Sex: Female
  Weight: 68.4 kg

DRUGS (1)
  1. ZOLEDRONIC ACID [Suspect]
     Active Substance: ZOLEDRONIC ACID
     Indication: Senile osteoporosis
     Dosage: 60 MG ONCE PER YEAR INTRAVENOUS DRIP
     Route: 041
     Dates: start: 20230804, end: 20230804

REACTIONS (14)
  - Arthralgia [None]
  - Influenza like illness [None]
  - Joint swelling [None]
  - Peripheral swelling [None]
  - Joint range of motion decreased [None]
  - Laboratory test abnormal [None]
  - Blood creatinine increased [None]
  - Fall [None]
  - Elbow operation [None]
  - Adverse drug reaction [None]
  - Pain [None]
  - Gait disturbance [None]
  - Arthropathy [None]
  - Asthenia [None]

NARRATIVE: CASE EVENT DATE: 20230804
